FAERS Safety Report 10281306 (Version 1)
Quarter: 2014Q3

REPORT INFORMATION
  Report Type: Spontaneous
  Country: US (occurrence: None)
  Receive Date: 20140702
  Receipt Date: 20140702
  Transmission Date: 20150326
  Serious: Yes (Life-Threatening)
  Sender: FDA-Public Use
  Company Number: None

PATIENT
  Age: 57 Year
  Sex: Male
  Weight: 97.52 kg

DRUGS (1)
  1. LEVOFLOXACIN [Suspect]
     Active Substance: LEVOFLOXACIN
     Indication: PROSTATOMEGALY
     Route: 048
     Dates: start: 20140427, end: 20140531

REACTIONS (7)
  - Arthralgia [None]
  - Tendon pain [None]
  - Diplopia [None]
  - Pain in extremity [None]
  - Musculoskeletal pain [None]
  - Eye pain [None]
  - Feeling abnormal [None]

NARRATIVE: CASE EVENT DATE: 20140701
